FAERS Safety Report 11433440 (Version 1)
Quarter: 2015Q3

REPORT INFORMATION
  Report Type: Spontaneous
  Country: FR (occurrence: None)
  Receive Date: 20150827
  Receipt Date: 20150827
  Transmission Date: 20151125
  Serious: Yes (Other)
  Sender: FDA-Public Use
  Company Number: COR_00363_2015

PATIENT

DRUGS (6)
  1. IFOSFAMIDE (IFOSFAMIDE) [Suspect]
     Active Substance: IFOSFAMIDE
     Indication: EMBRYONAL RHABDOMYOSARCOMA
     Dosage: 1 COURSE, 3 COURSES, DF
  2. DOXORUBICIN (DOXORUBICIN) [Suspect]
     Active Substance: DOXORUBICIN
     Indication: EMBRYONAL RHABDOMYOSARCOMA
     Dosage: 1 COURSE, 3 COURSES
  3. ACTINOMYCINES (ACTINOMYCIN) [Suspect]
     Active Substance: UNSPECIFIED INGREDIENT
     Indication: EMBRYONAL RHABDOMYOSARCOMA
     Dosage: 3 COURSES, DF
  4. RADIOTHERAPY [Suspect]
     Active Substance: RADIATION THERAPY
     Indication: EMBRYONAL RHABDOMYOSARCOMA
     Dosage: 42 GY
  5. ETOPOSIDE (ETOPOSIDE) [Suspect]
     Active Substance: ETOPOSIDE
     Indication: EMBRYONAL RHABDOMYOSARCOMA
     Dosage: 1 COURSE
  6. VINCRISTINE (VINCRISTINE) [Suspect]
     Active Substance: VINCRISTINE
     Indication: EMBRYONAL RHABDOMYOSARCOMA
     Dosage: 1 COURSE, 3 COURSES, DE

REACTIONS (3)
  - Aplasia [None]
  - Dermatitis [None]
  - Mucosal inflammation [None]
